FAERS Safety Report 14114318 (Version 1)
Quarter: 2017Q4

REPORT INFORMATION
  Report Type: Other
  Country: US (occurrence: US)
  Receive Date: 20171023
  Receipt Date: 20171023
  Transmission Date: 20180321
  Serious: Yes (Hospitalization)
  Sender: FDA-Public Use
  Company Number: US-B. BRAUN MEDICAL INC.-2031146

PATIENT
  Age: 62 Year
  Sex: Female

DRUGS (12)
  1. HORMONE REPLACEMENT THERAPY [Concomitant]
     Active Substance: UNSPECIFIED INGREDIENT
  2. FOLIC ACID. [Concomitant]
     Active Substance: FOLIC ACID
  3. MODAFINIL. [Concomitant]
     Active Substance: MODAFINIL
  4. LAMOTRIGINE. [Concomitant]
     Active Substance: LAMOTRIGINE
  5. ESCITALOPRAM [Concomitant]
     Active Substance: ESCITALOPRAM OXALATE
  6. VITAMIN D [Concomitant]
     Active Substance: CHOLECALCIFEROL
  7. TRAZODONE [Concomitant]
     Active Substance: TRAZODONE HYDROCHLORIDE
  8. BUMETANIDE. [Concomitant]
     Active Substance: BUMETANIDE
  9. SYNTHROID [Concomitant]
     Active Substance: LEVOTHYROXINE SODIUM
  10. METHYLPHENIDATE. [Concomitant]
     Active Substance: METHYLPHENIDATE
  11. LACTATED RINGERS SOLUTION [Suspect]
     Active Substance: CALCIUM CHLORIDE\POTASSIUM CHLORIDE\SODIUM CHLORIDE\SODIUM LACTATE
     Route: 042
  12. DULOXETINE. [Concomitant]
     Active Substance: DULOXETINE

REACTIONS (1)
  - Hyponatraemia [None]
